FAERS Safety Report 7511111-6 (Version None)
Quarter: 2011Q2

REPORT INFORMATION
  Report Type: 
  Country: None (occurrence: None)
  Receive Date: 20110531
  Receipt Date: 20110516
  Transmission Date: 20111010
  Serious: Yes (Hospitalization)
  Sender: FDA-Public Use
  Company Number: GB-JNJFOC-20110202425

PATIENT
  Age: 21 Year
  Sex: Female

DRUGS (7)
  1. CYCLIZINE [Concomitant]
  2. OMEPRAZOLE [Concomitant]
  3. METOCLOPRAMIDE [Concomitant]
  4. IBUPROFEN [Concomitant]
  5. SUMATRIPTAN SUCCINATE [Concomitant]
  6. TRAMADOL HCL [Suspect]
     Indication: ABDOMINAL PAIN
     Route: 065
     Dates: start: 20090401, end: 20090901
  7. TRAMADOL HCL [Suspect]
     Route: 065
     Dates: start: 20091001, end: 20091101

REACTIONS (2)
  - HYPERPROLACTINAEMIA [None]
  - SECONDARY ADRENOCORTICAL INSUFFICIENCY [None]
